FAERS Safety Report 7988976-7 (Version None)
Quarter: 2011Q4

REPORT INFORMATION
  Report Type: 
  Country: None (occurrence: None)
  Receive Date: 20111219
  Receipt Date: 20111208
  Transmission Date: 20120403
  Serious: Yes (Other)
  Sender: FDA-Public Use
  Company Number: DK-GENZYME-CLOF-1001464

PATIENT
  Sex: Male

DRUGS (45)
  1. TOILAX [Concomitant]
     Indication: PRODUCT USED FOR UNKNOWN INDICATION
     Dosage: 5 MG QD
     Route: 048
     Dates: start: 20101112, end: 20101123
  2. SOLU-MEDROL [Concomitant]
     Indication: PRODUCT USED FOR UNKNOWN INDICATION
     Dosage: 40 MG, QD
     Route: 042
     Dates: start: 20101123, end: 20101129
  3. PROCTOSEDYL [Concomitant]
     Indication: PRODUCT USED FOR UNKNOWN INDICATION
     Dosage: 1 OTHER UNK
     Route: 054
     Dates: start: 20110105, end: 20110204
  4. TRANDOPLAN [Concomitant]
     Indication: PRODUCT USED FOR UNKNOWN INDICATION
     Dosage: 50 MG, QD
     Route: 048
     Dates: start: 20101118
  5. MEROPENEM [Concomitant]
     Indication: PRODUCT USED FOR UNKNOWN INDICATION
     Dosage: 2000 MG, UNK
     Route: 042
     Dates: start: 20101123, end: 20101129
  6. PETIDIN SAD [Concomitant]
     Indication: PRODUCT USED FOR UNKNOWN INDICATION
     Dosage: 20 MG  QD
     Route: 042
     Dates: start: 20101123, end: 20101129
  7. ACYCLOVIR [Concomitant]
     Indication: PRODUCT USED FOR UNKNOWN INDICATION
     Dosage: 800 MG TID
     Route: 048
     Dates: start: 20101126, end: 20101129
  8. CETIRIZINE HCL [Concomitant]
     Indication: PRODUCT USED FOR UNKNOWN INDICATION
     Dosage: 10 MG, ONCE
     Route: 048
     Dates: start: 20101230, end: 20101231
  9. CLINDAMYCIN HCL [Concomitant]
     Dosage: 600 MG, TID
     Route: 048
     Dates: start: 20110113, end: 20110204
  10. PRIMPERAN TAB [Concomitant]
     Indication: PRODUCT USED FOR UNKNOWN INDICATION
     Dosage: 30 MG QD
     Route: 048
     Dates: start: 20101108, end: 20101115
  11. VOGALENE [Concomitant]
     Indication: PRODUCT USED FOR UNKNOWN INDICATION
     Dosage: 30 MG QD
     Route: 048
     Dates: start: 20101108, end: 20101115
  12. MOXALOLE [Concomitant]
     Indication: PRODUCT USED FOR UNKNOWN INDICATION
     Dosage: 1 OTHER QD
     Route: 048
     Dates: start: 20101111, end: 20101129
  13. MORFIN SAD [Concomitant]
     Indication: PRODUCT USED FOR UNKNOWN INDICATION
     Dosage: 5 MG QD
     Route: 048
     Dates: start: 20101112, end: 20101115
  14. GLUKOSE ISOTONISK SAD [Concomitant]
     Indication: PRODUCT USED FOR UNKNOWN INDICATION
     Dosage: 1000 ML, ONCE
     Route: 042
     Dates: start: 20110105, end: 20110105
  15. TOILAX [Concomitant]
     Dosage: 5 MG, QD
     Route: 048
     Dates: start: 20110103
  16. AMOXICILLIN AND CLAVULANATE POTASSIUM [Concomitant]
     Indication: PRODUCT USED FOR UNKNOWN INDICATION
     Dosage: UNK TID
     Route: 048
     Dates: start: 20101119, end: 20101123
  17. MEROPENEM [Concomitant]
     Indication: PRODUCT USED FOR UNKNOWN INDICATION
     Dosage: 1000 MG TID
     Route: 042
     Dates: start: 20101123, end: 20101123
  18. CLEMASTINE FUMARATE [Concomitant]
     Indication: PRODUCT USED FOR UNKNOWN INDICATION
     Dosage: 1 MG QD
     Route: 042
     Dates: start: 20101123, end: 20101129
  19. GENTAMICIN [Concomitant]
     Indication: PRODUCT USED FOR UNKNOWN INDICATION
     Dosage: 240 MG QD
     Route: 042
     Dates: start: 20110106, end: 20110113
  20. FLUCONAZOLE [Concomitant]
     Dosage: 400 MG, QD
     Route: 048
     Dates: start: 20110113, end: 20110204
  21. EVOLTRA [Suspect]
     Dosage: 20 MG/M2, QDX5
     Route: 042
     Dates: start: 20101227, end: 20101231
  22. TRAMADOL HCL [Concomitant]
     Indication: PRODUCT USED FOR UNKNOWN INDICATION
     Dosage: 50 MG, QID
     Route: 048
     Dates: start: 20101112, end: 20101116
  23. TRANEXAMSYRE [Concomitant]
     Indication: PRODUCT USED FOR UNKNOWN INDICATION
     Dosage: 1000 MG QID
     Route: 042
     Dates: start: 20101114, end: 20101115
  24. COLIMYCIN [Concomitant]
     Indication: PRODUCT USED FOR UNKNOWN INDICATION
     Dosage: 2 MIE X 3
     Route: 042
     Dates: start: 20101123, end: 20101124
  25. CLINDAMYCIN HCL [Concomitant]
     Indication: PRODUCT USED FOR UNKNOWN INDICATION
     Dosage: 600 MG TID
     Route: 048
     Dates: start: 20101129, end: 20101204
  26. ONDANSETRON [Concomitant]
     Dosage: 16 MG, QD
     Route: 048
     Dates: start: 20101227, end: 20110101
  27. EVOLTRA [Suspect]
     Dosage: 20 MG/M2, UNK
     Route: 042
     Dates: start: 20101108, end: 20101108
  28. CIPROFLOXACIN [Concomitant]
     Indication: PRODUCT USED FOR UNKNOWN INDICATION
     Dosage: 500 MG, BID
     Route: 048
     Dates: start: 20101119, end: 20101123
  29. CIPROFLOXACIN [Concomitant]
     Dosage: 500 MG, BID
     Route: 048
     Dates: start: 20101129, end: 20101204
  30. SOLU-MEDROL [Concomitant]
     Dosage: 20 MG, QD
     Route: 042
     Dates: start: 20101231, end: 20101231
  31. TAZOBACTAM [Concomitant]
     Indication: PRODUCT USED FOR UNKNOWN INDICATION
     Dosage: 1 OTHER TID
     Route: 042
     Dates: start: 20110105, end: 20110106
  32. EVOLTRA [Suspect]
     Indication: MYELODYSPLASTIC SYNDROME
     Dosage: 20 MG/M2, QDX5
     Route: 042
     Dates: start: 20101110, end: 20101114
  33. VOGALENE [Concomitant]
     Dosage: 30 MG UNK
     Route: 048
     Dates: start: 20101227, end: 20101231
  34. IMOCLONE [Concomitant]
     Indication: PRODUCT USED FOR UNKNOWN INDICATION
     Dosage: 7.5 MG QD
     Route: 048
     Dates: start: 20101110, end: 20101222
  35. PRIMPERAN TAB [Concomitant]
     Dosage: 10 MG QD
     Route: 042
     Dates: start: 20101123, end: 20101129
  36. VALACYCLOVIR HYDROCHLORIDE [Concomitant]
     Indication: PRODUCT USED FOR UNKNOWN INDICATION
     Dosage: 500 MG, BID
     Route: 048
     Dates: start: 20110125, end: 20110204
  37. MOXALOLE [Concomitant]
     Dosage: 1 STK QD
     Route: 048
     Dates: start: 20110107, end: 20110113
  38. MEROPENEM [Concomitant]
     Dosage: 1000 MG, TID
     Route: 042
     Dates: start: 20110106, end: 20110113
  39. ONDANSETRON [Concomitant]
     Indication: PRODUCT USED FOR UNKNOWN INDICATION
     Dosage: 16 MG, QD
     Route: 048
     Dates: start: 20101108, end: 20101115
  40. PINEX [Concomitant]
     Indication: PRODUCT USED FOR UNKNOWN INDICATION
     Dosage: 1000 MG QD
     Route: 048
     Dates: start: 20101110, end: 20101113
  41. FLUCONAZOLE [Concomitant]
     Indication: PRODUCT USED FOR UNKNOWN INDICATION
     Dosage: 400 MG, QD
     Route: 048
     Dates: start: 20101119, end: 20101222
  42. COLIMYCIN [Concomitant]
     Dosage: 6 MIE QD
     Route: 042
     Dates: start: 20101123, end: 20101123
  43. VANCOMYCIN [Concomitant]
     Indication: PRODUCT USED FOR UNKNOWN INDICATION
     Dosage: 1 G BID
     Route: 042
     Dates: start: 20101124, end: 20101129
  44. KLYX [Concomitant]
     Indication: PRODUCT USED FOR UNKNOWN INDICATION
     Dosage: 1 OTHER QD
     Route: 054
     Dates: start: 20110106, end: 20110113
  45. DILTIAZEM HCL [Concomitant]
     Indication: PRODUCT USED FOR UNKNOWN INDICATION
     Dosage: 2 APPLICATIONS QD
     Route: 065
     Dates: start: 20110107, end: 20110204

REACTIONS (3)
  - NEUTROPENIA [None]
  - THROMBOCYTOPENIA [None]
  - PANCYTOPENIA [None]
